FAERS Safety Report 25045015 (Version 2)
Quarter: 2025Q1

REPORT INFORMATION
  Report Type: Spontaneous
  Country: NL (occurrence: NL)
  Receive Date: 20250306
  Receipt Date: 20250328
  Transmission Date: 20250409
  Serious: Yes (Hospitalization)
  Sender: AVERITAS
  Company Number: NL-GRUNENTHAL-2025-103666

PATIENT
  Age: 52 Year

DRUGS (13)
  1. QUTENZA [Suspect]
     Active Substance: CAPSAICIN
     Indication: POEMS syndrome
     Route: 003
     Dates: start: 20250212, end: 20250212
  2. QUTENZA [Suspect]
     Active Substance: CAPSAICIN
     Indication: Neuropathy peripheral
  3. MORPHINE SULFATE [Concomitant]
     Active Substance: MORPHINE SULFATE
     Route: 065
  4. LYRICA [Concomitant]
     Active Substance: PREGABALIN
     Route: 065
  5. LYRICA [Concomitant]
     Active Substance: PREGABALIN
     Dosage: 25 MILLIGRAM, 3/DAY
     Route: 065
  6. LYRICA [Concomitant]
     Active Substance: PREGABALIN
     Dosage: 25 MILLIGRAM, 2/DAY
     Route: 065
     Dates: end: 20250307
  7. DULOXETINE [Concomitant]
     Active Substance: DULOXETINE
     Route: 065
     Dates: start: 20250307
  8. ACETAMINOPHEN [Concomitant]
     Active Substance: ACETAMINOPHEN
     Route: 065
  9. LIDOCAINE [Concomitant]
     Active Substance: LIDOCAINE
     Route: 065
     Dates: start: 202502
  10. ASPIRIN [Concomitant]
     Active Substance: ASPIRIN
     Dosage: 80 MILLIGRAM, 1/DAY
     Route: 065
  11. POLYETHYLENE GLYCOLS [Concomitant]
     Active Substance: POLYETHYLENE GLYCOLS
     Route: 065
  12. OMEPRAZOLE [Concomitant]
     Active Substance: OMEPRAZOLE
     Dosage: 20 MILLIGRAM, 2/DAY
     Route: 065
  13. DEXAMETHASONE [Concomitant]
     Active Substance: DEXAMETHASONE
     Dosage: 4 MILLIGRAM, 1/DAY
     Route: 065

REACTIONS (6)
  - Application site discolouration [Unknown]
  - Application site pain [Unknown]
  - Application site paraesthesia [Unknown]
  - Application site pain [Unknown]
  - Application site pain [Unknown]
  - Application site discolouration [Unknown]

NARRATIVE: CASE EVENT DATE: 20250201
